FAERS Safety Report 21547092 (Version 1)
Quarter: 2022Q4

REPORT INFORMATION
  Report Type: Spontaneous
  Country: FR (occurrence: FR)
  Receive Date: 20221103
  Receipt Date: 20221103
  Transmission Date: 20230112
  Serious: Yes (Hospitalization)
  Sender: FDA-Public Use
  Company Number: None

PATIENT
  Age: 8 Year
  Sex: Male
  Weight: 56 kg

DRUGS (3)
  1. EBASTINE [Suspect]
     Active Substance: EBASTINE
     Indication: Pyrexia
     Dosage: 5 MILLIGRAM, ONCE
     Route: 048
     Dates: start: 20221002, end: 20221002
  2. ACETAMINOPHEN\GUAIFENESIN\OXOMEMAZINE\SODIUM BENZOATE [Suspect]
     Active Substance: ACETAMINOPHEN\GUAIFENESIN\OXOMEMAZINE\SODIUM BENZOATE
     Indication: Pyrexia
     Dosage: 10 MILLILITER, ONCE
     Route: 048
     Dates: start: 20221002, end: 20221002
  3. ACETAMINOPHEN [Concomitant]
     Active Substance: ACETAMINOPHEN
     Dosage: UNK

REACTIONS (2)
  - Altered state of consciousness [Recovered/Resolved]
  - Seizure [Recovered/Resolved]

NARRATIVE: CASE EVENT DATE: 20221002
